FAERS Safety Report 16350198 (Version 1)
Quarter: 2019Q2

REPORT INFORMATION
  Report Type: Spontaneous
  Country: US (occurrence: US)
  Receive Date: 20190523
  Receipt Date: 20190523
  Transmission Date: 20190711
  Serious: Yes (Death, Other)
  Sender: FDA-Public Use
  Company Number: US-009507513-1905USA009043

PATIENT
  Age: 61 Year
  Sex: Female

DRUGS (2)
  1. INTRON A [Suspect]
     Active Substance: INTERFERON ALFA-2B
     Indication: COLON CANCER
     Dosage: 18 MM U/3ML; 0.05 MILLILITER, TIW(THREE TIMES PER WEEK) MSD (MULTIPLE DOSE VIAL)
     Route: 023
  2. INTRON A [Suspect]
     Active Substance: INTERFERON ALFA-2B
     Indication: COLON CANCER

REACTIONS (2)
  - Death [Fatal]
  - Product use in unapproved indication [Unknown]

NARRATIVE: CASE EVENT DATE: 20190519
